FAERS Safety Report 16055845 (Version 5)
Quarter: 2019Q2

REPORT INFORMATION
  Report Type: Report from Study
  Country: CA (occurrence: CA)
  Receive Date: 20190311
  Receipt Date: 20190620
  Transmission Date: 20190711
  Serious: Yes (Other)
  Sender: FDA-Public Use
  Company Number: CA-ROCHE-2273676

PATIENT
  Age: 56 Year
  Sex: Female
  Weight: 104 kg

DRUGS (9)
  1. LEUCOVORIN [FOLINIC ACID] [Concomitant]
     Active Substance: LEUCOVORIN
     Indication: PRODUCT USED FOR UNKNOWN INDICATION
     Route: 065
  2. METHOTREXATE. [Concomitant]
     Active Substance: METHOTREXATE
     Route: 058
  3. ACTEMRA [Suspect]
     Active Substance: TOCILIZUMAB
     Indication: RHEUMATOID ARTHRITIS
     Route: 058
     Dates: start: 20190221, end: 201904
  4. ACTEMRA [Interacting]
     Active Substance: TOCILIZUMAB
     Route: 058
     Dates: start: 201904
  5. CLINDAMYCIN. [Concomitant]
     Active Substance: CLINDAMYCIN
     Route: 065
     Dates: start: 2019
  6. OMEPRAZOLE. [Concomitant]
     Active Substance: OMEPRAZOLE
     Indication: PRODUCT USED FOR UNKNOWN INDICATION
     Route: 065
  7. PREDNISONE. [Concomitant]
     Active Substance: PREDNISONE
     Indication: PRODUCT USED FOR UNKNOWN INDICATION
     Route: 065
  8. PLAQUENIL [Interacting]
     Active Substance: HYDROXYCHLOROQUINE SULFATE
     Indication: PRODUCT USED FOR UNKNOWN INDICATION
     Route: 065
     Dates: end: 20190224
  9. MOXIFLOXACIN. [Concomitant]
     Active Substance: MOXIFLOXACIN

REACTIONS (15)
  - Epistaxis [Recovered/Resolved]
  - Dizziness [Recovered/Resolved]
  - Joint warmth [Not Recovered/Not Resolved]
  - Arthralgia [Unknown]
  - Drug interaction [Unknown]
  - Weight increased [Unknown]
  - Feeling abnormal [Recovering/Resolving]
  - Oropharyngeal pain [Recovered/Resolved]
  - Lower respiratory tract infection [Recovered/Resolved]
  - Abdominal discomfort [Recovered/Resolved]
  - Feeling abnormal [Recovered/Resolved]
  - Abdominal pain upper [Not Recovered/Not Resolved]
  - Headache [Not Recovered/Not Resolved]
  - Ill-defined disorder [Not Recovered/Not Resolved]
  - Gastroenteritis viral [Unknown]

NARRATIVE: CASE EVENT DATE: 20190222
